FAERS Safety Report 4480426-0 (Version None)
Quarter: 2004Q4

REPORT INFORMATION
  Report Type: 
  Country: None (occurrence: None)
  Receive Date: 20041018
  Receipt Date: 20041004
  Transmission Date: 20050328
  Serious: Yes (Hospitalization)
  Sender: FDA-Public Use
  Company Number: US013973

PATIENT
  Sex: Female

DRUGS (1)
  1. GABITRIL [Suspect]
     Indication: PAIN
     Dosage: 24 MG ONCE ORAL
     Route: 048

REACTIONS (3)
  - AMNESIA [None]
  - CONVULSION [None]
  - UNRESPONSIVE TO VERBAL STIMULI [None]
